FAERS Safety Report 22003640 (Version 2)
Quarter: 2023Q4

REPORT INFORMATION
  Report Type: Spontaneous
  Country: FR (occurrence: FR)
  Receive Date: 20230217
  Receipt Date: 20231026
  Transmission Date: 20240110
  Serious: Yes (Hospitalization)
  Sender: FDA-Public Use
  Company Number: FR-AFSSAPS-AN2023000132

PATIENT
  Age: 56 Year
  Sex: Male
  Weight: 54 kg

DRUGS (6)
  1. PANTOPRAZOLE [Suspect]
     Active Substance: PANTOPRAZOLE
     Indication: Dyspepsia
     Dosage: 1 DOSAGE FORM, DAILY
     Route: 048
     Dates: start: 20210126, end: 20210129
  2. KEYTRUDA [Suspect]
     Active Substance: PEMBROLIZUMAB
     Indication: Squamous cell carcinoma
     Dosage: 1 DOSAGE FORM, DAILY
     Route: 040
     Dates: start: 20210107, end: 20210107
  3. PIPERACILLIN SODIUM\TAZOBACTAM SODIUM [Suspect]
     Active Substance: PIPERACILLIN SODIUM\TAZOBACTAM SODIUM
     Indication: Pancytopenia
     Dosage: 1 DOSAGE FORM, DAILY
     Route: 040
     Dates: start: 20210122, end: 20210129
  4. FLUOROURACIL [Suspect]
     Active Substance: FLUOROURACIL
     Indication: Squamous cell carcinoma
     Dosage: 1 DOSAGE FORM, DAILY
     Route: 040
     Dates: start: 20210107, end: 20210107
  5. FUNGIZONE [Suspect]
     Active Substance: AMPHOTERICIN B
     Indication: Mucosal inflammation
     Dosage: 1 DOSAGE FORM, DAILY
     Route: 048
     Dates: start: 20210122, end: 20210129
  6. CARBOPLATIN [Suspect]
     Active Substance: CARBOPLATIN
     Indication: Squamous cell carcinoma
     Dosage: 1 DOSAGE FORM, DAILY
     Route: 040
     Dates: start: 20210107, end: 20210107

REACTIONS (1)
  - Stevens-Johnson syndrome [Recovering/Resolving]

NARRATIVE: CASE EVENT DATE: 20210127
